FAERS Safety Report 14989012 (Version 2)
Quarter: 2018Q2

REPORT INFORMATION
  Report Type: Report from Study
  Country: TW (occurrence: TW)
  Receive Date: 20180608
  Receipt Date: 20180618
  Transmission Date: 20180711
  Serious: Yes (Hospitalization)
  Sender: FDA-Public Use
  Company Number: TW-ASTELLAS-2018US026357

PATIENT
  Age: 76 Year
  Sex: Male
  Weight: 57 kg

DRUGS (16)
  1. DICLOFENAC POTASSIUM. [Concomitant]
     Active Substance: DICLOFENAC POTASSIUM
     Indication: PATHOLOGICAL FRACTURE
     Route: 042
     Dates: start: 20180528
  2. LACTUL [Concomitant]
     Indication: CONSTIPATION
     Route: 048
     Dates: start: 20180524
  3. COMPESOLON [Concomitant]
     Active Substance: PREDNISOLONE
     Indication: PROSTATE CANCER
     Route: 048
     Dates: start: 20180524
  4. ENZALUTAMIDE [Suspect]
     Active Substance: ENZALUTAMIDE
     Indication: PROSTATE CANCER
     Dosage: UNK, ONCE DAILY
     Route: 048
     Dates: start: 20150115
  5. DEXAMETHASONE. [Concomitant]
     Active Substance: DEXAMETHASONE
     Indication: PATHOLOGICAL FRACTURE
     Dosage: 5 MG/ML, THRICE DAILY
     Route: 042
  6. IWELL [Concomitant]
     Indication: PEPTIC ULCER
     Route: 048
  7. NALBUPHINE HCL [Concomitant]
     Active Substance: NALBUPHINE HYDROCHLORIDE
     Indication: PAIN
     Dosage: 8 MG, Q8H PRN
     Route: 042
  8. RANITIDINE. [Concomitant]
     Active Substance: RANITIDINE
     Indication: PEPTIC ULCER
     Route: 042
  9. ULBAN A [Concomitant]
     Indication: PEPTIC ULCER
     Route: 048
     Dates: start: 20180524
  10. HARNALIDGE OCAS [Concomitant]
     Active Substance: TAMSULOSIN HYDROCHLORIDE
     Indication: PROSTATE CANCER
     Route: 048
     Dates: start: 20180524
  11. TRAMTOR [Concomitant]
     Indication: PROSTATE CANCER
     Route: 048
     Dates: start: 20180524
  12. VITAMIN B COMPLEX [Concomitant]
     Active Substance: CYANOCOBALAMIN\DEXPANTHENOL\NIACINAMIDE\PYRIDOXINE HYDROCHLORIDE\RIBOFLAVIN 5^-PHOSPHATE SODIUM\THIAMINE HYDROCHLORIDE\VITAMIN B COMPLEX
     Indication: DECREASED APPETITE
     Route: 041
  13. STAZYME [Concomitant]
     Indication: DYSPEPSIA
     Route: 048
     Dates: start: 20180524
  14. LEUPLIN [Concomitant]
     Active Substance: LEUPROLIDE ACETATE
     Indication: PROSTATE CANCER
     Route: 058
     Dates: start: 20180524
  15. OMEZOL                             /00661201/ [Concomitant]
     Active Substance: OMEPRAZOLE
     Indication: PEPTIC ULCER
     Route: 048
     Dates: start: 20180524
  16. MOSAD [Concomitant]
     Indication: DYSPEPSIA
     Route: 048
     Dates: start: 20180524

REACTIONS (1)
  - Pathological fracture [Not Recovered/Not Resolved]

NARRATIVE: CASE EVENT DATE: 20180528
